FAERS Safety Report 4416350-9 (Version None)
Quarter: 2004Q3

REPORT INFORMATION
  Report Type: 
  Country: None (occurrence: None)
  Receive Date: 20040805
  Receipt Date: 20040802
  Transmission Date: 20050211
  Serious: Yes (Other)
  Sender: FDA-Public Use
  Company Number: BR-ROCHE-376436

PATIENT
  Age: 30 Year
  Sex: Female
  Weight: 59 kg

DRUGS (3)
  1. RIVOTRIL [Suspect]
     Indication: DIZZINESS
     Route: 048
     Dates: start: 20040727, end: 20040728
  2. FLUOXETINE [Concomitant]
     Indication: DEPRESSION
     Route: 048
  3. TRAZODONE HCL [Concomitant]
     Indication: INSOMNIA
     Route: 048

REACTIONS (2)
  - FACIAL PALSY [None]
  - HYPOAESTHESIA [None]
